FAERS Safety Report 7525987-X (Version None)
Quarter: 2011Q2

REPORT INFORMATION
  Report Type: 
  Country: None (occurrence: None)
  Receive Date: 20110606
  Receipt Date: 20081122
  Transmission Date: 20111010
  Serious: Yes (Other)
  Sender: FDA-Public Use
  Company Number: US-BAYER-200839392NA

PATIENT
  Sex: Female
  Weight: 68 kg

DRUGS (6)
  1. CLONIDINE [Concomitant]
     Dosage: 0.1 MG, UNK
  2. HUMULIN 70/30 [Concomitant]
  3. AMLODIPINE BESYLATE [Concomitant]
     Dosage: 10 MG, UNK
     Dates: start: 20060101
  4. METOPROLOL TARTRATE [Concomitant]
     Dosage: 25 MG, UNK
  5. TRASYLOL [Suspect]
     Indication: CORONARY ARTERY BYPASS
     Dates: start: 20061201
  6. LISINOPRIL [Concomitant]
     Dosage: 20 MG, UNK
     Dates: start: 20061201

REACTIONS (9)
  - RENAL IMPAIRMENT [None]
  - ANXIETY [None]
  - FEAR [None]
  - PAIN [None]
  - UNEVALUABLE EVENT [None]
  - RENAL FAILURE [None]
  - RENAL INJURY [None]
  - EMOTIONAL DISTRESS [None]
  - STRESS [None]
